FAERS Safety Report 23935430 (Version 1)
Quarter: 2024Q2

REPORT INFORMATION
  Report Type: Spontaneous
  Country: FR (occurrence: FR)
  Receive Date: 20240604
  Receipt Date: 20240604
  Transmission Date: 20240715
  Serious: Yes (Hospitalization, Other)
  Sender: FDA-Public Use
  Company Number: FR-AFSSAPS-PA2024001021

PATIENT
  Age: 22 Year
  Sex: Male
  Weight: 57.6 kg

DRUGS (13)
  1. VALACYCLOVIR HYDROCHLORIDE [Suspect]
     Active Substance: VALACYCLOVIR HYDROCHLORIDE
     Indication: Prophylaxis
     Dosage: 1 DOSAGE FORM, ONCE A DAY
     Route: 042
     Dates: start: 20240219
  2. ADRIAMYCIN [Suspect]
     Active Substance: DOXORUBICIN HYDROCHLORIDE
     Indication: Hodgkin^s disease
     Dosage: 60 MILLIGRAM, CYCLICAL C1J1
     Route: 042
     Dates: start: 20240219, end: 20240219
  3. ADRIAMYCIN [Suspect]
     Active Substance: DOXORUBICIN HYDROCHLORIDE
     Dosage: 60 MILLIGRAM, CYCLICAL C2J1
     Route: 042
     Dates: start: 20240311, end: 20240311
  4. CYCLOPHOSPHAMIDE [Suspect]
     Active Substance: CYCLOPHOSPHAMIDE
     Indication: Hodgkin^s disease
     Dosage: 60 MILLIGRAM, CYCLICAL C1J1
     Route: 042
     Dates: start: 20240219, end: 20240219
  5. CYCLOPHOSPHAMIDE [Suspect]
     Active Substance: CYCLOPHOSPHAMIDE
     Dosage: 60 MILLIGRAM, CYCLICAL C2J1
     Route: 042
     Dates: start: 20240311, end: 20240311
  6. BACTRIM [Suspect]
     Active Substance: SULFAMETHOXAZOLE\TRIMETHOPRIM
     Indication: Opportunistic infection prophylaxis
     Dosage: 1 DOSAGE FORM, TWO TIMES A DAY
     Route: 048
     Dates: start: 20240222
  7. ETOPOSIDE [Suspect]
     Active Substance: ETOPOSIDE
     Indication: Hodgkin^s disease
     Dosage: 360 DOSAGE FORM, CYCLICAL C1J1
     Route: 042
     Dates: start: 20240219, end: 20240219
  8. BLEOMYCIN SULFATE [Suspect]
     Active Substance: BLEOMYCIN SULFATE
     Indication: Hodgkin^s disease
     Dosage: 1 DOSAGE FORM, CYCLICAL C1J1
     Route: 042
     Dates: start: 20240219, end: 20240219
  9. BLEOMYCIN SULFATE [Suspect]
     Active Substance: BLEOMYCIN SULFATE
     Dosage: 1 DOSAGE FORM, CYCLICAL C2J1
     Route: 042
     Dates: start: 20240311, end: 20240311
  10. PREDNISONE [Suspect]
     Active Substance: PREDNISONE
     Indication: Hodgkin^s disease
     Dosage: 60 MILLIGRAM, CYCLICAL C1J1-J8
     Route: 042
     Dates: start: 20240219, end: 20240226
  11. PREDNISONE [Suspect]
     Active Substance: PREDNISONE
     Dosage: 60 MILLIGRAM, CYCLICAL C2J1-J8
     Route: 042
     Dates: start: 20240311, end: 20240318
  12. DACARBAZINE [Suspect]
     Active Substance: DACARBAZINE
     Indication: Hodgkin^s disease
     Dosage: 400 MILLIGRAM, CYCLICAL C1J2-J3
     Route: 042
     Dates: start: 20240220, end: 20240221
  13. DACARBAZINE [Suspect]
     Active Substance: DACARBAZINE
     Dosage: 400 MILLIGRAM, CYCLICAL C2J2-J3
     Route: 042
     Dates: start: 20240312, end: 20240313

REACTIONS (1)
  - Meningitis aseptic [Recovering/Resolving]

NARRATIVE: CASE EVENT DATE: 20240407
